FAERS Safety Report 8365878-8 (Version None)
Quarter: 2012Q2

REPORT INFORMATION
  Report Type: 
  Country: None (occurrence: None)
  Receive Date: 20120515
  Receipt Date: 20120501
  Transmission Date: 20120825
  Serious: Yes (Death)
  Sender: FDA-Public Use
  Company Number: FK201201307

PATIENT
  Age: 67 Year
  Sex: Female

DRUGS (3)
  1. METHOTREXATE [Suspect]
     Indication: RHEUMATOID ARTHRITIS
     Dosage: 20 MG, 1 IN 1 WK
  2. PREDNISONE [Suspect]
     Dosage: 5MG1IN 1D
  3. ADALIMUMAB (ADALIMUMAB) [Concomitant]

REACTIONS (5)
  - PNEUMONIA [None]
  - TACHYCARDIA [None]
  - CYANOSIS [None]
  - TACHYPNOEA [None]
  - DYSTHYMIC DISORDER [None]
